FAERS Safety Report 10204201 (Version 2)
Quarter: 2014Q2

REPORT INFORMATION
  Report Type: Spontaneous
  Country: FR (occurrence: FR)
  Receive Date: 20140529
  Receipt Date: 20140529
  Transmission Date: 20141212
  Serious: Yes (Death)
  Sender: FDA-Public Use
  Company Number: FR-ASTRAZENECA-2014SE36286

PATIENT
  Sex: Female

DRUGS (2)
  1. TENORMINE [Suspect]
     Indication: TACHYCARDIA
     Dosage: 5 MG/ 10 ML FOR 48 HOURS, AT A 5 MG DAILY DOSAGE
     Route: 042
  2. TENORMINE [Suspect]
     Indication: TACHYCARDIA
     Route: 048

REACTIONS (2)
  - Death [Fatal]
  - Off label use [Recovered/Resolved]
